FAERS Safety Report 16500328 (Version 1)
Quarter: 2019Q3

REPORT INFORMATION
  Report Type: Spontaneous
  Country: US (occurrence: US)
  Receive Date: 20190628
  Receipt Date: 20190628
  Transmission Date: 20191004
  Serious: Yes (Hospitalization)
  Sender: FDA-Public Use
  Company Number: None

PATIENT
  Age: 80 Year
  Sex: Female

DRUGS (1)
  1. GLATIRAMER [Suspect]
     Active Substance: GLATIRAMER
     Indication: MULTIPLE SCLEROSIS
     Dosage: ?          OTHER FREQUENCY:3 X PER WEEK;?
     Route: 058
     Dates: start: 20190304, end: 20190627

REACTIONS (3)
  - Product substitution issue [None]
  - Condition aggravated [None]
  - Fall [None]

NARRATIVE: CASE EVENT DATE: 20190627
